FAERS Safety Report 5452135-2 (Version None)
Quarter: 2007Q3

REPORT INFORMATION
  Report Type: 
  Country: None (occurrence: None)
  Receive Date: 20070912
  Receipt Date: 20070829
  Transmission Date: 20080115
  Serious: Yes (Life-Threatening)
  Sender: FDA-Public Use
  Company Number: 8025083

PATIENT
  Sex: Female
  Weight: 2.69 kg

DRUGS (3)
  1. KEPPRA [Suspect]
     Indication: CONVULSION
     Dosage: 3000 MG /D TRP
     Route: 064
     Dates: start: 20061207, end: 20070528
  2. KEPPRA [Suspect]
     Indication: CONVULSION
     Dosage: 1500 MG/ D TRP
     Route: 064
     Dates: start: 20070529, end: 20070802
  3. PRENATAL VITAMINS [Concomitant]

REACTIONS (5)
  - ACOUSTIC STIMULATION TESTS ABNORMAL [None]
  - DRUG EXPOSURE DURING PREGNANCY [None]
  - JAUNDICE [None]
  - PREMATURE LABOUR [None]
  - PULMONARY VALVE STENOSIS [None]
